FAERS Safety Report 5430678-5 (Version None)
Quarter: 2007Q3

REPORT INFORMATION
  Report Type: 
  Country: None (occurrence: None)
  Receive Date: 20070830
  Receipt Date: 20070823
  Transmission Date: 20080115
  Serious: Yes (Death, Hospitalization)
  Sender: FDA-Public Use
  Company Number: ES-AMGEN-UK234836

PATIENT
  Sex: Female

DRUGS (5)
  1. ARANESP [Suspect]
     Indication: ANAEMIA OF MALIGNANT DISEASE
     Route: 058
     Dates: start: 20060920, end: 20070215
  2. AMIODARONE [Concomitant]
  3. DILTIAZEM [Concomitant]
  4. TRAMADOL HCL [Concomitant]
  5. CARBOPLATIN [Concomitant]

REACTIONS (1)
  - PULMONARY EMBOLISM [None]
